FAERS Safety Report 11278378 (Version 3)
Quarter: 2015Q4

REPORT INFORMATION
  Report Type: Report from Study
  Country: US (occurrence: US)
  Receive Date: 20150717
  Receipt Date: 20151004
  Transmission Date: 20160304
  Serious: Yes (Hospitalization)
  Sender: FDA-Public Use
  Company Number: PHEH2015US013713

PATIENT
  Sex: Female
  Weight: 96.9 kg

DRUGS (4)
  1. CLOZARIL [Suspect]
     Active Substance: CLOZAPINE
     Indication: SCHIZOAFFECTIVE DISORDER
     Dosage: 450 MG, QHS (AT BED TIME)
     Route: 048
  2. CLOZARIL [Suspect]
     Active Substance: CLOZAPINE
     Indication: BIPOLAR DISORDER
  3. CLOZARIL [Suspect]
     Active Substance: CLOZAPINE
     Indication: DEPRESSED MOOD
  4. SERTRALINE [Concomitant]
     Active Substance: SERTRALINE HYDROCHLORIDE
     Indication: PRODUCT USED FOR UNKNOWN INDICATION
     Dosage: 200 MG, QD (DAILY)
     Route: 048

REACTIONS (3)
  - Impaired self-care [Unknown]
  - Off label use [Unknown]
  - Psychiatric decompensation [Unknown]
